FAERS Safety Report 25753200 (Version 1)
Quarter: 2025Q3

REPORT INFORMATION
  Report Type: Spontaneous
  Country: GB (occurrence: GB)
  Receive Date: 20250902
  Receipt Date: 20250902
  Transmission Date: 20251021
  Serious: Yes (Hospitalization, Other)
  Sender: DEXCEL LTD.
  Company Number: None

PATIENT
  Age: 87 Year

DRUGS (10)
  1. ROSUVASTATIN [Concomitant]
     Active Substance: ROSUVASTATIN
  2. GabapentinGABAPENTIN (Specific Substance SUB915) [Concomitant]
  3. ColecalciferolCOLECALCIFEROL [Concomitant]
  4. PERINDOPRIL [Suspect]
     Active Substance: PERINDOPRIL
  5. BISOPROLOL [Concomitant]
     Active Substance: BISOPROLOL
  6. OMEPRAZOLE [Suspect]
     Active Substance: OMEPRAZOLE
  7. TrimethoprimTRIMETHOPRIM (Specific Substance SUB576) [Concomitant]
  8. RivaroxabanRIVAROXABAN (Specific Substance SUB9129) [Concomitant]
  9. DENUSOMABDENOSUMAB (Specific Substance SUB9921) [Concomitant]
  10. DoxazosinDOXAZOSIN (Specific Substance SUB5103) [Concomitant]

REACTIONS (1)
  - Hyponatraemia [Recovered/Resolved]
